FAERS Safety Report 13884459 (Version 1)
Quarter: 2017Q3

REPORT INFORMATION
  Report Type: Spontaneous
  Country: US (occurrence: US)
  Receive Date: 20170821
  Receipt Date: 20170821
  Transmission Date: 20171127
  Serious: No
  Sender: FDA-Public Use
  Company Number: US-TEVA-777520ACC

PATIENT
  Sex: Female
  Weight: 49.9 kg

DRUGS (13)
  1. ZOCOR [Concomitant]
     Active Substance: SIMVASTATIN
     Indication: BLOOD CHOLESTEROL
     Dosage: 40 MILLIGRAM DAILY; TAKING IT FOR 10PLUS YEARS
  2. LISINOPRIL. [Concomitant]
     Active Substance: LISINOPRIL
     Indication: BLOOD PRESSURE MEASUREMENT
     Dosage: 40 MILLIGRAM DAILY;
     Dates: start: 2009
  3. FENOFIBRATE. [Concomitant]
     Active Substance: FENOFIBRATE
     Indication: BLOOD CHOLESTEROL INCREASED
     Dosage: 134 MILLIGRAM DAILY; TAKING THIS FOR 6MONTHS
  4. RESTORIL [Concomitant]
     Active Substance: TEMAZEPAM
     Indication: SLEEP DISORDER
     Dosage: TAKE 1 PER NIGHT AS NEEDED
  5. BUSPAR [Suspect]
     Active Substance: BUSPIRONE HYDROCHLORIDE
     Indication: PANIC ATTACK
     Dosage: 5 MILLIGRAM DAILY;
     Dates: start: 201702, end: 201702
  6. NORVASC [Concomitant]
     Active Substance: AMLODIPINE BESYLATE
     Indication: HYPERTENSION
     Dosage: 5 MILLIGRAM DAILY; TAKING THIS FOR ABOUT A YEAR
  7. FLAGYL [Suspect]
     Active Substance: METRONIDAZOLE\METRONIDAZOLE HYDROCHLORIDE
     Indication: GASTROINTESTINAL BACTERIAL INFECTION
     Dosage: 2000 MILLIGRAM DAILY; TOOK 1 OF THEM 4 TIMES A DAY BY MOUTH
     Dates: start: 20170331, end: 201704
  8. PROTONIX [Suspect]
     Active Substance: PANTOPRAZOLE SODIUM
     Dosage: 80 MILLIGRAM DAILY;
     Dates: start: 2017, end: 201704
  9. TETRACYCLINE [Suspect]
     Active Substance: TETRACYCLINE
     Dosage: 1500 MILLIGRAM DAILY;
     Dates: start: 20170331, end: 201704
  10. BUSPAR [Suspect]
     Active Substance: BUSPIRONE HYDROCHLORIDE
     Indication: ANXIETY
  11. FLUOXETINE [Suspect]
     Active Substance: FLUOXETINE HYDROCHLORIDE
     Indication: PANIC ATTACK
     Dosage: 40 MILLIGRAM DAILY;
     Dates: start: 201702, end: 201702
  12. LEXAPRO [Concomitant]
     Active Substance: ESCITALOPRAM OXALATE
     Indication: DEPRESSION
     Dosage: 20 MILLIGRAM DAILY; TAKING FOR LONG TIME
  13. NITROGLYCERIN. [Concomitant]
     Active Substance: NITROGLYCERIN
     Indication: CHEST PAIN
     Dosage: HAS STENTS IN HER HEART. SHE CARRIED THIS AROUND SINCE 2009

REACTIONS (11)
  - Miliaria [Recovered/Resolved]
  - Blood magnesium decreased [Recovered/Resolved]
  - Pruritus [Not Recovered/Not Resolved]
  - Nightmare [Not Recovered/Not Resolved]
  - Injury [Unknown]
  - Burning sensation [Recovered/Resolved]
  - Feeling hot [Recovered/Resolved]
  - Rash [Not Recovered/Not Resolved]
  - Tremor [Recovered/Resolved]
  - Nerve injury [Unknown]
  - Pain [Recovered/Resolved]

NARRATIVE: CASE EVENT DATE: 2017
